FAERS Safety Report 5866660-3 (Version None)
Quarter: 2008Q3

REPORT INFORMATION
  Report Type: 
  Country: None (occurrence: None)
  Receive Date: 20080902
  Receipt Date: 20080827
  Transmission Date: 20090109
  Serious: Yes (Death, Other)
  Sender: FDA-Public Use
  Company Number: CA-BRISTOL-MYERS SQUIBB COMPANY-14308118

PATIENT
  Age: 50 Year
  Sex: Female

DRUGS (8)
  1. SPRYCEL [Suspect]
     Indication: ACUTE LYMPHOCYTIC LEUKAEMIA
     Route: 048
     Dates: start: 20070720, end: 20080708
  2. WARFARIN SODIUM [Suspect]
     Indication: HEART VALVE REPLACEMENT
  3. ATIVAN [Suspect]
     Dosage: 6 MG X 9
  4. SUPEUDOL [Suspect]
     Dosage: 1 DOSAGE FORM = 20 MG X 12
  5. METFORMIN HCL [Concomitant]
  6. METOPROLOL TARTRATE [Concomitant]
  7. PREVACID [Concomitant]
  8. COUMADIN [Concomitant]

REACTIONS (1)
  - OVERDOSE [None]
